FAERS Safety Report 6983193-1 (Version None)
Quarter: 2010Q3

REPORT INFORMATION
  Report Type: 
  Country: None (occurrence: None)
  Receive Date: 20100914
  Receipt Date: 20100714
  Transmission Date: 20110219
  Serious: No
  Sender: FDA-Public Use
  Company Number: US-PFIZER INC-2010069428

PATIENT
  Sex: Female
  Weight: 63.039 kg

DRUGS (4)
  1. LYRICA [Suspect]
     Indication: FIBROMYALGIA
     Dosage: 75 MG, 2X/DAY
     Dates: start: 20080101
  2. SYNTHROID [Concomitant]
     Dosage: UNK
  3. PREMARIN [Concomitant]
     Dosage: 0.425 MG, UNK
  4. DEPAKOTE [Concomitant]
     Dosage: 250 MG, UNK

REACTIONS (3)
  - COLD SWEAT [None]
  - DYSGEUSIA [None]
  - FEELING HOT [None]
